FAERS Safety Report 9011001 (Version 1)
Quarter: 2013Q1

REPORT INFORMATION
  Report Type: Spontaneous
  Country: US (occurrence: US)
  Receive Date: 20130111
  Receipt Date: 20130111
  Transmission Date: 20140127
  Serious: Yes (Other)
  Sender: FDA-Public Use
  Company Number: US-009507513-1301USA001701

PATIENT
  Age: 83 Year
  Sex: Female

DRUGS (11)
  1. MONTELUKAST SODIUM [Suspect]
  2. ZOLPIDEM TARTRATE [Concomitant]
     Indication: LACERATION
  3. [THERAPY UNSPECIFIED] [Concomitant]
  4. ACETAMINOPHEN [Concomitant]
  5. ASPIRIN [Concomitant]
  6. FLUTICASONE PROPIONATE [Concomitant]
  7. [THERAPY UNSPECIFIED] [Concomitant]
  8. DESLORATADINE [Concomitant]
  9. FUROSEMIDE [Concomitant]
  10. THYROID [Concomitant]
  11. POLYSPORIN [Suspect]
     Dosage: QUARTER OF DIME SIZE

REACTIONS (5)
  - Wound secretion [Unknown]
  - Wound complication [Unknown]
  - Staphylococcal infection [Unknown]
  - Skin exfoliation [Unknown]
  - Blister [Unknown]
